FAERS Safety Report 12225978 (Version 3)
Quarter: 2016Q2

REPORT INFORMATION
  Report Type: Report from Study
  Country: US (occurrence: US)
  Receive Date: 20160331
  Receipt Date: 20160613
  Transmission Date: 20160815
  Serious: Yes (Death, Hospitalization)
  Sender: FDA-Public Use
  Company Number: US-ACTELION-A-US2016-133667

PATIENT
  Age: 62 Year
  Sex: Female

DRUGS (2)
  1. VELETRI [Suspect]
     Active Substance: EPOPROSTENOL
     Indication: PULMONARY ARTERIAL HYPERTENSION
     Dosage: 42.9 NG/KG, PER MIN
     Route: 042
     Dates: end: 20160507
  2. TRACLEER [Suspect]
     Active Substance: BOSENTAN
     Indication: PULMONARY ARTERIAL HYPERTENSION
     Dosage: UNK
     Route: 048
     Dates: end: 20160507

REACTIONS (5)
  - Device infusion issue [Fatal]
  - Dizziness [Fatal]
  - Cardiac arrest [Fatal]
  - Visual impairment [Unknown]
  - Unresponsive to stimuli [Fatal]

NARRATIVE: CASE EVENT DATE: 20160507
